FAERS Safety Report 7591443-6 (Version None)
Quarter: 2011Q3

REPORT INFORMATION
  Report Type: 
  Country: None (occurrence: None)
  Receive Date: 20110701
  Receipt Date: 20110701
  Transmission Date: 20111222
  Serious: No
  Sender: FDA-Public Use
  Company Number: None

PATIENT

DRUGS (1)
  1. TECHNETIUM TC-99M MEBROFENIN [Suspect]
     Dates: end: 20110613

REACTIONS (1)
  - PRODUCT LABEL ON WRONG PRODUCT [None]
